FAERS Safety Report 4379818-X (Version None)
Quarter: 2004Q2

REPORT INFORMATION
  Report Type: 
  Country: None (occurrence: None)
  Receive Date: 20040617
  Receipt Date: 20040609
  Transmission Date: 20050107
  Serious: Yes (Other)
  Sender: FDA-Public Use
  Company Number: AU-ROCHE-370397

PATIENT
  Age: 71 Year
  Sex: Male

DRUGS (15)
  1. ROCEPHIN [Suspect]
     Indication: PROPHYLAXIS
     Route: 042
     Dates: start: 20030115, end: 20030117
  2. ROCEPHIN [Suspect]
     Route: 042
     Dates: start: 20030120, end: 20030121
  3. PARECOXIB SODIUM [Suspect]
     Indication: PAIN
     Route: 042
     Dates: start: 20030116, end: 20030120
  4. LOMOTIL [Suspect]
     Route: 048
     Dates: start: 20030120, end: 20030121
  5. METRONIDAZOLE [Suspect]
     Indication: PROPHYLAXIS
     Route: 042
     Dates: start: 20030115, end: 20030121
  6. GENTAMICIN SULFATE [Suspect]
     Indication: PROPHYLAXIS
     Route: 042
     Dates: start: 20030117, end: 20030120
  7. AMOXYCILLIN SODIUM [Suspect]
     Indication: PROPHYLAXIS
     Route: 042
     Dates: start: 20030116, end: 20030120
  8. ACETAMINOPHEN [Concomitant]
  9. HEPARIN [Concomitant]
  10. PRAVACHOL [Concomitant]
  11. TEGRETOL-XR [Concomitant]
  12. ENDONE [Concomitant]
  13. MORPHINE [Concomitant]
  14. MAXOLON [Concomitant]
  15. TRAMAL [Concomitant]

REACTIONS (1)
  - RENAL FAILURE ACUTE [None]
